FAERS Safety Report 4468059-3 (Version None)
Quarter: 2004Q4

REPORT INFORMATION
  Report Type: 
  Country: None (occurrence: None)
  Receive Date: 20041004
  Receipt Date: 20040923
  Transmission Date: 20050328
  Serious: Yes (Hospitalization)
  Sender: FDA-Public Use
  Company Number: S04-USA-06314-01

PATIENT
  Sex: Male

DRUGS (2)
  1. NAMENDA [Suspect]
     Dosage: 5 MG QD PO
     Route: 048
     Dates: start: 20040101, end: 20040101
  2. PERIACTIN [Concomitant]

REACTIONS (4)
  - AGITATION [None]
  - COMA [None]
  - DELIRIUM [None]
  - MYOCLONUS [None]
